FAERS Safety Report 7040915-1 (Version None)
Quarter: 2010Q3

REPORT INFORMATION
  Report Type: 
  Country: None (occurrence: None)
  Receive Date: 20100929
  Receipt Date: 20100624
  Transmission Date: 20110219
  Serious: No
  Sender: FDA-Public Use
  Company Number: US-WYE-H12002809

PATIENT
  Age: 51 Year
  Sex: Male

DRUGS (7)
  1. PRISTIQ [Suspect]
     Indication: ANXIETY
     Dosage: 50 MG 1X PER 1 DAY, ORAL
     Route: 048
     Dates: start: 20081101
  2. PRISTIQ [Suspect]
     Indication: DEPRESSION
     Dosage: 50 MG 1X PER 1 DAY, ORAL
     Route: 048
     Dates: start: 20081101
  3. ATIVAN [Concomitant]
  4. DEPAKOTE [Concomitant]
  5. MAGNESIUM CITRATE (MAGNESIUM CITRATE) [Concomitant]
  6. MELATONIN (MELATONIN) [Concomitant]
  7. KLONOPIN (CLONAZAPEM) [Concomitant]

REACTIONS (7)
  - AKATHISIA [None]
  - ANXIETY [None]
  - CONDITION AGGRAVATED [None]
  - DRUG INEFFECTIVE [None]
  - ENERGY INCREASED [None]
  - INSOMNIA [None]
  - RESTLESSNESS [None]
